FAERS Safety Report 7547072-3 (Version None)
Quarter: 2011Q2

REPORT INFORMATION
  Report Type: 
  Country: None (occurrence: None)
  Receive Date: 20110524
  Receipt Date: 20110318
  Transmission Date: 20111010
  Serious: No
  Sender: FDA-Public Use
  Company Number: 027707

PATIENT
  Sex: Female

DRUGS (2)
  1. VITAMN B12 /00056201/ [Concomitant]
  2. CIMZIA [Suspect]
     Indication: CROHN'S DISEASE
     Dosage: (SUBCUTANEOUS)
     Route: 058
     Dates: start: 20101001

REACTIONS (3)
  - INJECTION SITE PAIN [None]
  - FATIGUE [None]
  - NASOPHARYNGITIS [None]
